FAERS Safety Report 11330471 (Version 1)
Quarter: 2015Q3

REPORT INFORMATION
  Report Type: Spontaneous
  Country: US (occurrence: US)
  Receive Date: 20150803
  Receipt Date: 20150803
  Transmission Date: 20151125
  Serious: Yes (Other)
  Sender: FDA-Public Use
  Company Number: US-AUROBINDO-AUR-APU-2015-06678

PATIENT

DRUGS (1)
  1. ACYCLOVIR SODIUM INJECTION 1000 MG/20 ML [Suspect]
     Active Substance: ACYCLOVIR SODIUM
     Indication: PRODUCT USED FOR UNKNOWN INDICATION
     Route: 065

REACTIONS (3)
  - Skin reaction [Not Recovered/Not Resolved]
  - Blister [Not Recovered/Not Resolved]
  - Administration site necrosis [Not Recovered/Not Resolved]
